FAERS Safety Report 6119864-9 (Version None)
Quarter: 2009Q1

REPORT INFORMATION
  Report Type: 
  Country: None (occurrence: None)
  Receive Date: 20090316
  Receipt Date: 20090302
  Transmission Date: 20090719
  Serious: Yes (Other)
  Sender: FDA-Public Use
  Company Number: DE-ROCHE-617997

PATIENT
  Age: 73 Year
  Sex: Female
  Weight: 60 kg

DRUGS (13)
  1. BONIVA [Suspect]
     Indication: OSTEOPOROSIS
     Route: 042
     Dates: start: 20070810, end: 20090127
  2. CALCILAC [Concomitant]
  3. FALITHROM [Concomitant]
     Route: 048
     Dates: start: 20060101
  4. GLIMEPIRIDE [Concomitant]
     Indication: DIABETES MELLITUS
  5. IDEOS [Concomitant]
     Indication: OSTEOPOROSIS
  6. LISINOPRIL [Concomitant]
     Indication: PACEMAKER GENERATED RHYTHM
  7. NEBIVOLOL [Concomitant]
  8. NEXIUM [Concomitant]
     Indication: GASTRIC ULCER
  9. NITRAZEPAM [Concomitant]
     Indication: SLEEP DISORDER
     Route: 048
  10. PANTOZOL [Concomitant]
  11. SPIRIVA [Concomitant]
  12. TORSEMIDE [Concomitant]
     Dates: start: 20080501
  13. VESICARE [Concomitant]
     Route: 048
     Dates: start: 20080101

REACTIONS (3)
  - MICTURITION URGENCY [None]
  - OROPHARYNGEAL PAIN [None]
  - WEIGHT INCREASED [None]
